FAERS Safety Report 25360310 (Version 1)
Quarter: 2025Q2

REPORT INFORMATION
  Report Type: Spontaneous
  Country: FR (occurrence: FR)
  Receive Date: 20250527
  Receipt Date: 20250527
  Transmission Date: 20250716
  Serious: Yes (Other)
  Sender: CHEPLAPHARM
  Company Number: None

PATIENT
  Age: 42 Year
  Sex: Male

DRUGS (4)
  1. CLONAZEPAM [Suspect]
     Active Substance: CLONAZEPAM
  2. LYRICA [Suspect]
     Active Substance: PREGABALIN
  3. DIAZEPAM [Suspect]
     Active Substance: DIAZEPAM
  4. COCAINE [Suspect]
     Active Substance: COCAINE

REACTIONS (5)
  - Substance use disorder [Unknown]
  - Somnolence [Recovered/Resolved]
  - Fall [Recovered/Resolved]
  - Oxygen saturation decreased [Recovered/Resolved]
  - Mydriasis [Recovered/Resolved]
